FAERS Safety Report 21550767 (Version 1)
Quarter: 2022Q4

REPORT INFORMATION
  Report Type: Spontaneous
  Country: US (occurrence: US)
  Receive Date: 20221103
  Receipt Date: 20221103
  Transmission Date: 20230112
  Serious: No
  Sender: FDA-Public Use
  Company Number: US-PERRIGO-22US006094

PATIENT
  Sex: Female

DRUGS (2)
  1. FAMOTIDINE [Suspect]
     Active Substance: FAMOTIDINE
     Indication: Dyspepsia
     Dosage: 20 MG, TWICE
     Route: 048
     Dates: start: 20220421, end: 20220422
  2. FLORASTOR [LACTOBACILLUS ACIDOPHILUS] [Concomitant]
     Indication: Gastrointestinal disorder
     Dosage: UNK
     Route: 065
     Dates: end: 20220421

REACTIONS (1)
  - Drug ineffective [Unknown]

NARRATIVE: CASE EVENT DATE: 20220421
